FAERS Safety Report 5286669-0 (Version None)
Quarter: 2007Q1

REPORT INFORMATION
  Report Type: 
  Country: None (occurrence: None)
  Receive Date: 20070116
  Receipt Date: 20061121
  Transmission Date: 20070707
  Serious: No
  Sender: FDA-Public Use
  Company Number: 2006SP004145

PATIENT
  Age: 63 Year
  Sex: Female
  Weight: 65.7716 kg

DRUGS (9)
  1. LUNESTA [Suspect]
     Indication: INSOMNIA
     Dosage: 2 MG; HS; ORAL
     Route: 048
     Dates: start: 20061117, end: 20061118
  2. ATENOLOL [Concomitant]
  3. ENALAPRIL [Concomitant]
  4. CALAN [Concomitant]
  5. CYMBALTA [Concomitant]
  6. PREVACID [Concomitant]
  7. LEVOXYL [Concomitant]
  8. SIMVASTATIN [Concomitant]
  9. PLETAL [Concomitant]

REACTIONS (1)
  - DYSGEUSIA [None]
